FAERS Safety Report 8305494-7 (Version None)
Quarter: 2012Q2

REPORT INFORMATION
  Report Type: 
  Country: None (occurrence: None)
  Receive Date: 20120423
  Receipt Date: 20120418
  Transmission Date: 20120825
  Serious: Yes (Other)
  Sender: FDA-Public Use
  Company Number: US-GLAXOSMITHKLINE-A0974186A

PATIENT
  Age: 63 Year
  Sex: Female

DRUGS (3)
  1. PREDNISONE [Concomitant]
  2. VENTOLIN HFA [Concomitant]
  3. ADVAIR DISKUS 100/50 [Suspect]
     Indication: EMPHYSEMA
     Dosage: 1PUFF TWICE PER DAY
     Route: 055
     Dates: start: 20060101

REACTIONS (3)
  - CATARACT [None]
  - DRUG ADMINISTRATION ERROR [None]
  - PNEUMONIA [None]
